FAERS Safety Report 17033641 (Version 1)
Quarter: 2019Q4

REPORT INFORMATION
  Report Type: Spontaneous
  Country: JP (occurrence: JP)
  Receive Date: 20191114
  Receipt Date: 20191114
  Transmission Date: 20200122
  Serious: Yes (Other)
  Sender: FDA-Public Use
  Company Number: JP-PFIZER INC-2019485793

PATIENT
  Age: 8 Decade
  Sex: Female

DRUGS (2)
  1. REBAMIPIDE [Concomitant]
     Active Substance: REBAMIPIDE
  2. CELECOX [Suspect]
     Active Substance: CELECOXIB
     Indication: ANALGESIC THERAPY
     Dosage: 200 MG, DAILY
     Route: 048

REACTIONS (2)
  - Haemoptysis [Unknown]
  - Nausea [Unknown]
